FAERS Safety Report 4898430-7 (Version None)
Quarter: 2006Q1

REPORT INFORMATION
  Report Type: 
  Country: None (occurrence: None)
  Receive Date: 20060130
  Receipt Date: 20060120
  Transmission Date: 20060701
  Serious: Yes (Other)
  Sender: FDA-Public Use
  Company Number: L06-ESP-00032-03

PATIENT
  Age: 79 Year
  Sex: Male

DRUGS (2)
  1. DILTIAZEM HCL [Suspect]
     Indication: HYPERTENSION
  2. VERAPAMIL [Suspect]

REACTIONS (3)
  - ERYTHEMA [None]
  - PRURITUS [None]
  - SKIN TEST POSITIVE [None]
